FAERS Safety Report 17956917 (Version 2)
Quarter: 2020Q3

REPORT INFORMATION
  Report Type: Report from Study
  Country: CA (occurrence: CA)
  Receive Date: 20200629
  Receipt Date: 20200807
  Transmission Date: 20201103
  Serious: Yes (Other)
  Sender: FDA-Public Use
  Company Number: CA-PFIZER INC-2020246455

PATIENT
  Age: 64 Year
  Sex: Female

DRUGS (2)
  1. METHOTREXATE SODIUM. [Suspect]
     Active Substance: METHOTREXATE SODIUM
  2. LEFLUNOMIDE. [Suspect]
     Active Substance: LEFLUNOMIDE

REACTIONS (7)
  - Hip fracture [Unknown]
  - Drug intolerance [Unknown]
  - Fall [Unknown]
  - Hepatic enzyme increased [Unknown]
  - Wrist fracture [Unknown]
  - Femur fracture [Unknown]
  - Rheumatoid arthritis [Unknown]
